FAERS Safety Report 24412101 (Version 1)
Quarter: 2024Q4

REPORT INFORMATION
  Report Type: Spontaneous
  Country: TR (occurrence: TR)
  Receive Date: 20241008
  Receipt Date: 20241008
  Transmission Date: 20250115
  Serious: Yes (Other)
  Sender: TEVA
  Company Number: TR-TEVA-VS-3250542

PATIENT

DRUGS (4)
  1. LEUCOVORIN [Suspect]
     Active Substance: LEUCOVORIN\LEUCOVORIN CALCIUM
     Indication: Gastric cancer
     Dosage: ON DAY 1, TOTAL 4 CYCLES EVERY 2?WEEKS PRIOR TO SURGERY AND 4?CYCLES EVERY 2?WEEKS AFTER SURGERY
     Route: 042
  2. DOCETAXEL [Suspect]
     Active Substance: DOCETAXEL
     Indication: Gastric cancer
     Dosage: ON DAY 1, TOTAL 4 CYCLES EVERY 2?WEEKS PRIOR TO SURGERY AND 4?CYCLES EVERY 2?WEEKS AFTER SURGERY
     Route: 042
  3. FLUOROURACIL [Suspect]
     Active Substance: FLUOROURACIL
     Indication: Gastric cancer
     Dosage: INFUSION ON DAY 1, TOTAL 4 CYCLES EVERY 2?WEEKS PRIOR TO SURGERY AND 4?CYCLES EVERY 2?WEEKS AFTER...
     Route: 042
  4. OXALIPLATIN [Suspect]
     Active Substance: OXALIPLATIN
     Indication: Gastric cancer
     Dosage: ON DAY 1, TOTAL 4 CYCLES EVERY 2?WEEKS PRIOR TO SURGERY AND 4?CYCLES EVERY 2?WEEKS AFTER SURGERY
     Route: 042

REACTIONS (1)
  - Thrombocytopenia [Unknown]
